FAERS Safety Report 7007802-6 (Version None)
Quarter: 2010Q3

REPORT INFORMATION
  Report Type: 
  Country: None (occurrence: None)
  Receive Date: 20100922
  Receipt Date: 20100915
  Transmission Date: 20110219
  Serious: Yes (Other)
  Sender: FDA-Public Use
  Company Number: JP-ROCHE-718649

PATIENT
  Sex: Female
  Weight: 38 kg

DRUGS (9)
  1. TOCILIZUMAB [Suspect]
     Indication: RHEUMATOID ARTHRITIS
     Route: 041
     Dates: start: 20091116, end: 20091116
  2. TOCILIZUMAB [Suspect]
     Route: 041
     Dates: start: 20091214, end: 20091214
  3. TOCILIZUMAB [Suspect]
     Route: 041
     Dates: start: 20100112, end: 20100112
  4. TOCILIZUMAB [Suspect]
     Route: 041
     Dates: start: 20100209, end: 20100209
  5. TOCILIZUMAB [Suspect]
     Route: 041
     Dates: start: 20100308, end: 20100308
  6. TOCILIZUMAB [Suspect]
     Route: 041
     Dates: start: 20100419, end: 20100419
  7. TOCILIZUMAB [Suspect]
     Route: 041
     Dates: start: 20100524
  8. CELCOX [Concomitant]
     Route: 048
  9. MUCOSTA [Concomitant]
     Dosage: FORM: PER ORAL AGENT
     Route: 048

REACTIONS (2)
  - IRON DEFICIENCY ANAEMIA [None]
  - WHITE BLOOD CELL COUNT DECREASED [None]
